FAERS Safety Report 7518680-0 (Version None)
Quarter: 2011Q2

REPORT INFORMATION
  Report Type: 
  Country: None (occurrence: None)
  Receive Date: 20110601
  Receipt Date: 20110601
  Transmission Date: 20111010
  Serious: Yes (Other)
  Sender: FDA-Public Use
  Company Number: None

PATIENT
  Age: 34 Year
  Sex: Male
  Weight: 76 kg

DRUGS (1)
  1. VFEND [Suspect]
     Indication: FEBRILE NEUTROPENIA
     Dosage: 460 MG Q12H IV
     Route: 042
     Dates: start: 20110530, end: 20110531

REACTIONS (4)
  - PHOTOPHOBIA [None]
  - PHOTOPSIA [None]
  - YELLOW SKIN [None]
  - COLOUR BLINDNESS ACQUIRED [None]
